FAERS Safety Report 19681677 (Version 3)
Quarter: 2021Q4

REPORT INFORMATION
  Report Type: Spontaneous
  Country: US (occurrence: US)
  Receive Date: 20210810
  Receipt Date: 20211005
  Transmission Date: 20220303
  Serious: No
  Sender: FDA-Public Use
  Company Number: US-ORGANON-O2108USA000201

PATIENT
  Age: 58 Year
  Sex: Female

DRUGS (2)
  1. DULERA [Suspect]
     Active Substance: FORMOTEROL FUMARATE DIHYDRATE\MOMETASONE FUROATE
     Indication: Post-acute COVID-19 syndrome
     Dosage: 50 MCG/5 MCG 120 DOSES,1 PUFFS BY MOUTH TWICE DAILY, 120 DOSE
     Route: 048
     Dates: start: 20210729
  2. DULERA [Suspect]
     Active Substance: FORMOTEROL FUMARATE DIHYDRATE\MOMETASONE FUROATE
     Indication: Lung disorder

REACTIONS (4)
  - Dyspnoea [Not Recovered/Not Resolved]
  - Drug ineffective for unapproved indication [Unknown]
  - Product use in unapproved indication [Unknown]
  - Incorrect dose administered [Unknown]

NARRATIVE: CASE EVENT DATE: 20210729
